FAERS Safety Report 8041883-6 (Version None)
Quarter: 2012Q1

REPORT INFORMATION
  Report Type: 
  Country: None (occurrence: None)
  Receive Date: 20120112
  Receipt Date: 20120112
  Transmission Date: 20120608
  Serious: No
  Sender: FDA-Public Use
  Company Number: None

PATIENT
  Age: 44 Year
  Sex: Female
  Weight: 68.038 kg

DRUGS (1)
  1. LEVAQUIN [Suspect]
     Indication: SINUSITIS
     Dosage: 500 MG
     Route: 048
     Dates: start: 20090909, end: 20090919

REACTIONS (5)
  - MOVEMENT DISORDER [None]
  - DEPRESSION [None]
  - ANXIETY [None]
  - PSYCHOTIC DISORDER [None]
  - MUSCLE RUPTURE [None]
